FAERS Safety Report 18236364 (Version 2)
Quarter: 2020Q3

REPORT INFORMATION
  Report Type: Report from Study
  Country: DE (occurrence: DE)
  Receive Date: 20200907
  Receipt Date: 20200917
  Transmission Date: 20201103
  Serious: Yes (Hospitalization)
  Sender: FDA-Public Use
  Company Number: DE-BIOGEN-2020BI00887249

PATIENT
  Age: 30 Year
  Sex: Male

DRUGS (2)
  1. PLEGRIDY [Suspect]
     Active Substance: PEGINTERFERON BETA-1A
     Indication: MULTIPLE SCLEROSIS
     Route: 058
     Dates: start: 20200210
  2. PLEGRIDY [Suspect]
     Active Substance: PEGINTERFERON BETA-1A
     Route: 058
     Dates: start: 20200210

REACTIONS (4)
  - Rhinitis [Recovered/Resolved]
  - Paraesthesia [Not Recovered/Not Resolved]
  - Pyrexia [Recovered/Resolved]
  - Uhthoff^s phenomenon [Recovered/Resolved]

NARRATIVE: CASE EVENT DATE: 20200531
